FAERS Safety Report 16250762 (Version 1)
Quarter: 2019Q2

REPORT INFORMATION
  Report Type: Spontaneous
  Country: US (occurrence: US)
  Receive Date: 20190426
  Receipt Date: 20190426
  Transmission Date: 20190711
  Serious: Yes (Death)
  Sender: FDA-Public Use
  Company Number: None

PATIENT
  Age: 83 Year
  Sex: Female

DRUGS (3)
  1. TRAMADOL 50MG [Concomitant]
     Active Substance: TRAMADOL
  2. STIVARGA [Suspect]
     Active Substance: REGORAFENIB
     Indication: HEPATIC NEOPLASM
     Route: 048
     Dates: start: 20181219, end: 20190425
  3. ONDANSETRON 4MG [Concomitant]
     Active Substance: ONDANSETRON

REACTIONS (1)
  - Death [None]

NARRATIVE: CASE EVENT DATE: 20190425
